FAERS Safety Report 21058266 (Version 1)
Quarter: 2022Q3

REPORT INFORMATION
  Report Type: Spontaneous
  Country: US (occurrence: None)
  Receive Date: 20220708
  Receipt Date: 20220708
  Transmission Date: 20221027
  Serious: Yes (Hospitalization)
  Sender: FDA-Public Use
  Company Number: None

PATIENT
  Age: 75 Year
  Sex: Female
  Weight: 88.2 kg

DRUGS (13)
  1. PALBOCICLIB [Suspect]
     Active Substance: PALBOCICLIB
     Indication: Breast cancer
     Dosage: OTHER FREQUENCY : DAY 1-21/ 28 D CYC;?
     Route: 048
     Dates: start: 20220315
  2. LETROZOLE [Suspect]
     Active Substance: LETROZOLE
     Indication: Breast cancer
     Dosage: FREQUENCY : DAILY;?
     Route: 048
     Dates: start: 20220222
  3. FUROSEMIDE [Concomitant]
     Active Substance: FUROSEMIDE
  4. APIXABAN [Concomitant]
     Active Substance: APIXABAN
  5. EMPAGLIFLOZIN [Concomitant]
     Active Substance: EMPAGLIFLOZIN
  6. DIGOXIN [Concomitant]
     Active Substance: DIGOXIN
  7. NITROGLYCERIN [Concomitant]
     Active Substance: NITROGLYCERIN
  8. SOTALOL [Concomitant]
     Active Substance: SOTALOL
  9. ALBUTEROL [Concomitant]
     Active Substance: ALBUTEROL
  10. SIMVASTATIN [Concomitant]
     Active Substance: SIMVASTATIN
  11. BENAZEPRIL [Concomitant]
     Active Substance: BENAZEPRIL HYDROCHLORIDE
  12. CARBIDOPA\LEVODOPA [Concomitant]
     Active Substance: CARBIDOPA\LEVODOPA
  13. ROPINIROLE [Concomitant]
     Active Substance: ROPINIROLE

REACTIONS (3)
  - Asthenia [None]
  - Fall [None]
  - Urinary tract infection [None]

NARRATIVE: CASE EVENT DATE: 20220706
